FAERS Safety Report 10188905 (Version 1)
Quarter: 2014Q2

REPORT INFORMATION
  Report Type: Spontaneous
  Country: US (occurrence: US)
  Receive Date: 20140522
  Receipt Date: 20140522
  Transmission Date: 20141212
  Serious: No
  Sender: FDA-Public Use
  Company Number: US-ZOGENIX, INC.-2014ZX000079

PATIENT
  Age: 44 Year
  Sex: Female
  Weight: 59.02 kg

DRUGS (2)
  1. ZOHYDRO ER [Suspect]
     Indication: PAIN
     Dates: start: 201403
  2. FENTANYL PATCH [Concomitant]
     Indication: PAIN
     Route: 062
     Dates: end: 20140401

REACTIONS (1)
  - Post procedural infection [Unknown]
